FAERS Safety Report 11190357 (Version 1)
Quarter: 2015Q2

REPORT INFORMATION
  Report Type: Spontaneous
  Country: US (occurrence: None)
  Receive Date: 20150612
  Receipt Date: 20150612
  Transmission Date: 20150821
  Serious: No
  Sender: FDA-Public Use
  Company Number: None

PATIENT
  Age: 52 Year
  Sex: Male
  Weight: 79.38 kg

DRUGS (2)
  1. BELSOMRA [Suspect]
     Active Substance: SUVOREXANT
     Indication: INSOMNIA
     Dosage: 10 PILLS
     Route: 048
     Dates: start: 20150611, end: 20150611
  2. BELSOMRA [Suspect]
     Active Substance: SUVOREXANT
     Indication: MIDDLE INSOMNIA
     Dosage: 10 PILLS
     Route: 048
     Dates: start: 20150611, end: 20150611

REACTIONS (6)
  - Muscle tightness [None]
  - Headache [None]
  - Blood pressure increased [None]
  - Heart rate increased [None]
  - Malaise [None]
  - Anxiety [None]

NARRATIVE: CASE EVENT DATE: 20150611
